FAERS Safety Report 7003551-9 (Version None)
Quarter: 2010Q3

REPORT INFORMATION
  Report Type: 
  Country: None (occurrence: None)
  Receive Date: 20100916
  Receipt Date: 20100907
  Transmission Date: 20110219
  Serious: Yes (Hospitalization)
  Sender: FDA-Public Use
  Company Number: 2010JP005336

PATIENT
  Age: 9 Year
  Sex: Male

DRUGS (1)
  1. VESICARE [Suspect]
     Indication: ENURESIS
     Dosage: 2.5 MG, ORAL; 10 MG, ORAL; 5 MG, ORAL
     Route: 048

REACTIONS (1)
  - ILEUS [None]
